FAERS Safety Report 7738672-6 (Version None)
Quarter: 2011Q3

REPORT INFORMATION
  Report Type: 
  Country: None (occurrence: None)
  Receive Date: 20110908
  Receipt Date: 20110906
  Transmission Date: 20111222
  Serious: No
  Sender: FDA-Public Use
  Company Number: US-PFIZER INC-2011209530

PATIENT
  Sex: Female
  Weight: 107 kg

DRUGS (11)
  1. CLONIDINE [Concomitant]
     Indication: SMOKING CESSATION THERAPY
     Dosage: 0.1 MG, CHANGING IT EVERY 7 DAYS
     Route: 062
  2. CYMBALTA [Concomitant]
     Indication: FIBROMYALGIA
     Dosage: 60 MG, DAILY
  3. BACLOFEN [Concomitant]
     Indication: MUSCLE RELAXANT THERAPY
     Dosage: 10 MG, 3X/DAY
  4. CHANTIX [Suspect]
     Dosage: UNK
     Dates: start: 20110101
  5. CYMBALTA [Concomitant]
     Indication: DEPRESSION
  6. DEPLIN [Concomitant]
     Indication: ADJUVANT THERAPY
     Dosage: 7.5 MG, UNK
  7. HYDROMORPHONE [Concomitant]
     Indication: PAIN
     Dosage: ONE TABLET, EVERY 8 HOURS
     Route: 048
  8. IBUPROFEN [Concomitant]
     Dosage: 800 MG, 3X/DAY
  9. FENTANYL [Concomitant]
     Indication: FIBROMYALGIA
     Dosage: 100 UG, CHANGING IT EVERY TWO DAYS
     Route: 062
  10. CHANTIX [Suspect]
     Indication: SMOKING CESSATION THERAPY
     Dosage: 0.5 MG, UNK
     Dates: start: 20110801, end: 20110101
  11. LYRICA [Concomitant]
     Indication: FIBROMYALGIA
     Dosage: 300 MG, 2X/DAY

REACTIONS (3)
  - INSOMNIA [None]
  - ABNORMAL DREAMS [None]
  - NAUSEA [None]
